FAERS Safety Report 24736080 (Version 2)
Quarter: 2025Q3

REPORT INFORMATION
  Report Type: Spontaneous
  Country: US (occurrence: US)
  Receive Date: 20241216
  Receipt Date: 20250816
  Transmission Date: 20251020
  Serious: No
  Sender: ALEXION PHARMACEUTICALS
  Company Number: US-AstraZeneca-CH-00767899A

PATIENT
  Sex: Male

DRUGS (1)
  1. FARXIGA [Suspect]
     Active Substance: DAPAGLIFLOZIN PROPANEDIOL
     Dates: start: 20241106

REACTIONS (11)
  - Pollakiuria [Unknown]
  - Fatigue [Unknown]
  - Parosmia [Unknown]
  - Palpitations [Unknown]
  - Blood test [Unknown]
  - Blood pressure measurement [Unknown]
  - Pulse abnormal [Unknown]
  - Heart rate [Unknown]
  - Polydipsia [Unknown]
  - Chromaturia [Unknown]
  - Pollakiuria [Unknown]
